FAERS Safety Report 11165925 (Version 9)
Quarter: 2017Q2

REPORT INFORMATION
  Report Type: Report from Study
  Country: GB (occurrence: GB)
  Receive Date: 20150604
  Receipt Date: 20170504
  Transmission Date: 20170829
  Serious: Yes (Hospitalization)
  Sender: FDA-Public Use
  Company Number: GB-EISAI MEDICAL RESEARCH-EC-2015-007352

PATIENT
  Age: 43 Year
  Sex: Male
  Weight: 65.6 kg

DRUGS (11)
  1. CLOBAZAM [Concomitant]
     Active Substance: CLOBAZAM
  2. FYCOMPA [Suspect]
     Active Substance: PERAMPANEL
     Route: 048
     Dates: start: 20141231, end: 20150114
  3. FYCOMPA [Suspect]
     Active Substance: PERAMPANEL
     Route: 048
     Dates: start: 20150413, end: 20150427
  4. FYCOMPA [Suspect]
     Active Substance: PERAMPANEL
     Route: 048
     Dates: start: 20150115, end: 20150325
  5. LACOSAMIDE. [Concomitant]
     Active Substance: LACOSAMIDE
  6. HUMULIN S [Concomitant]
  7. FYCOMPA [Suspect]
     Active Substance: PERAMPANEL
     Route: 048
     Dates: start: 20141127, end: 20141230
  8. LANTUS [Concomitant]
     Active Substance: INSULIN GLARGINE
  9. FYCOMPA [Suspect]
     Active Substance: PERAMPANEL
     Indication: PARTIAL SEIZURES
     Route: 048
     Dates: start: 20141112, end: 20141126
  10. FYCOMPA [Suspect]
     Active Substance: PERAMPANEL
     Route: 048
     Dates: start: 20150326, end: 20150410
  11. LAMOTRIGINE. [Concomitant]
     Active Substance: LAMOTRIGINE

REACTIONS (2)
  - Confusional state [Recovered/Resolved]
  - Ataxia [Recovered/Resolved]

NARRATIVE: CASE EVENT DATE: 20150411
